FAERS Safety Report 8885767 (Version 1)
Quarter: 2012Q4

REPORT INFORMATION
  Report Type: 
  Country: US (occurrence: US)
  Receive Date: 20121102
  Receipt Date: 20121102
  Transmission Date: 20130627
  Serious: Yes (Hospitalization)
  Sender: FDA-Public Use
  Company Number: US-PFIZER INC-2012273043

PATIENT
  Age: 59 Year
  Sex: Female
  Weight: 70.3 kg

DRUGS (4)
  1. LYRICA [Suspect]
     Indication: FIBROMYALGIA
     Dosage: 225 mg, 2x/day
     Route: 048
  2. ACETAMINOPHEN W/OXYCODONE [Concomitant]
     Indication: ARTHRITIS
     Dosage: 7.5/325 mg, 2x/day
  3. BUPROPION [Concomitant]
     Indication: DEPRESSION
     Dosage: 150 mg, daily
  4. OMEPRAZOLE [Concomitant]
     Indication: GASTRIC DISORDER
     Dosage: 20 mg, daily

REACTIONS (2)
  - Arthropathy [Unknown]
  - Procedural pain [Unknown]
